FAERS Safety Report 14606001 (Version 1)
Quarter: 2018Q1

REPORT INFORMATION
  Report Type: Spontaneous
  Country: ES (occurrence: ES)
  Receive Date: 20180307
  Receipt Date: 20180307
  Transmission Date: 20180509
  Serious: Yes (Death, Hospitalization)
  Sender: FDA-Public Use
  Company Number: ES-ROCHE-2019023

PATIENT
  Age: 23 Year
  Sex: Female

DRUGS (32)
  1. CYCLOPHOSPHAMIDE. [Suspect]
     Active Substance: CYCLOPHOSPHAMIDE
     Indication: PRODUCT USED FOR UNKNOWN INDICATION
     Route: 065
     Dates: start: 20160517, end: 20160518
  2. FLUDARABINE [Suspect]
     Active Substance: FLUDARABINE PHOSPHATE
     Indication: PRODUCT USED FOR UNKNOWN INDICATION
     Route: 065
     Dates: start: 20160517, end: 20160519
  3. PARACETAMOL [Concomitant]
     Active Substance: ACETAMINOPHEN
     Indication: PULMONARY OEDEMA
     Route: 065
     Dates: start: 20160630
  4. ONDANSETRON [Concomitant]
     Active Substance: ONDANSETRON
     Indication: GASTROENTERITIS
  5. COTRIMOXAZOLE [Concomitant]
     Active Substance: SULFAMETHOXAZOLE\TRIMETHOPRIM
     Route: 065
  6. AMIKACIN [Concomitant]
     Active Substance: AMIKACIN
     Indication: GASTROENTERITIS
     Route: 065
     Dates: start: 20160519
  7. VANCOMYCIN [Concomitant]
     Active Substance: VANCOMYCIN
     Indication: BACTERAEMIA
     Route: 065
     Dates: start: 20160519
  8. METAMIZOLE [Concomitant]
     Active Substance: METAMIZOLE
  9. HUMAN ALBUMIN [Concomitant]
     Active Substance: ALBUMIN HUMAN
     Route: 065
     Dates: start: 20160605
  10. PREDNISONE. [Concomitant]
     Active Substance: PREDNISONE
     Route: 065
     Dates: start: 20170322
  11. CIDOFOVIR. [Concomitant]
     Active Substance: CIDOFOVIR
     Indication: CYTOMEGALOVIRUS INFECTION
  12. IRUXOL [Concomitant]
     Indication: DECUBITUS ULCER
     Route: 065
     Dates: start: 201702
  13. ROACTEMRA [Suspect]
     Active Substance: TOCILIZUMAB
     Indication: CYTOKINE RELEASE SYNDROME
     Route: 042
     Dates: start: 20160606
  14. TISAGENLECLEUCEL. [Suspect]
     Active Substance: TISAGENLECLEUCEL
     Indication: ACUTE LYMPHOCYTIC LEUKAEMIA
     Dosage: DOSAGE IS UNCERTAIN.
     Route: 041
     Dates: start: 20160530
  15. PARACETAMOL [Concomitant]
     Active Substance: ACETAMINOPHEN
     Indication: GASTROENTERITIS
     Route: 065
     Dates: start: 20160519
  16. MEROPENEM. [Concomitant]
     Active Substance: MEROPENEM
     Indication: GASTROENTERITIS
     Route: 065
     Dates: start: 20160519
  17. VANCOMYCIN [Concomitant]
     Active Substance: VANCOMYCIN
     Route: 065
     Dates: start: 20170228
  18. POSACONAZOLE [Concomitant]
     Active Substance: POSACONAZOLE
     Indication: PROPHYLAXIS
  19. METHYLPREDNISOLONE. [Concomitant]
     Active Substance: METHYLPREDNISOLONE
  20. CALCIUM ALGINATE [Concomitant]
     Active Substance: CALCIUM ALGINATE
     Indication: DECUBITUS ULCER
     Route: 065
     Dates: start: 201702
  21. GABAPENTIN. [Concomitant]
     Active Substance: GABAPENTIN
     Indication: NEUROPATHY PERIPHERAL
  22. MEROPENEM. [Concomitant]
     Active Substance: MEROPENEM
     Indication: BACTERAEMIA
     Route: 065
     Dates: start: 20160610
  23. CEFTRIAXONE. [Concomitant]
     Active Substance: CEFTRIAXONE
     Indication: GASTROENTERITIS
     Route: 065
  24. MUPIROCIN. [Concomitant]
     Active Substance: MUPIROCIN
     Route: 065
     Dates: start: 20160519
  25. ACYCLOVIR. [Concomitant]
     Active Substance: ACYCLOVIR
     Route: 065
     Dates: start: 20160519
  26. CARMELLOSE [Concomitant]
     Indication: DECUBITUS ULCER
     Route: 065
     Dates: start: 201702
  27. AMIKACIN [Concomitant]
     Active Substance: AMIKACIN
     Indication: URINARY TRACT INFECTION
     Route: 065
     Dates: start: 20160901
  28. FOSCARNET [Concomitant]
     Active Substance: FOSCARNET
     Indication: CYTOMEGALOVIRUS INFECTION
  29. NORADRENALIN [Concomitant]
     Active Substance: NOREPINEPHRINE\NOREPINEPHRINE BITARTRATE
     Route: 065
     Dates: start: 20160605
  30. GABAPENTIN. [Concomitant]
     Active Substance: GABAPENTIN
     Indication: PARAESTHESIA
  31. FOSCARNET [Concomitant]
     Active Substance: FOSCARNET
     Indication: PROPHYLAXIS
  32. PREDNISONE. [Concomitant]
     Active Substance: PREDNISONE
     Route: 065
     Dates: start: 20160613

REACTIONS (10)
  - Malnutrition [Recovered/Resolved]
  - Encephalitis viral [Recovered/Resolved]
  - Anaemia [Recovered/Resolved]
  - Urinary tract infection [Recovered/Resolved]
  - Decreased appetite [Not Recovered/Not Resolved]
  - Bacteraemia [Recovered/Resolved]
  - Bronchial oedema [Recovered/Resolved]
  - Acute lymphocytic leukaemia [Fatal]
  - Non-cardiac chest pain [Recovered/Resolved]
  - Adenovirus infection [Recovered/Resolved]

NARRATIVE: CASE EVENT DATE: 20160622
